FAERS Safety Report 7601893-7 (Version None)
Quarter: 2011Q3

REPORT INFORMATION
  Report Type: 
  Country: None (occurrence: None)
  Receive Date: 20110711
  Receipt Date: 20110426
  Transmission Date: 20111222
  Serious: No
  Sender: FDA-Public Use
  Company Number: US-BAYER-2011-037306

PATIENT
  Age: 57 Year
  Weight: 56.689 kg

DRUGS (1)
  1. ALEVE (CAPLET) [Suspect]
     Indication: ARTHRALGIA
     Dosage: 1 DF, PRN, BOTTLE COUNT 24S
     Route: 048
     Dates: start: 20110329, end: 20110408

REACTIONS (1)
  - ARTHRALGIA [None]
